FAERS Safety Report 24818760 (Version 1)
Quarter: 2025Q1

REPORT INFORMATION
  Report Type: Report from Study
  Country: CA (occurrence: CA)
  Receive Date: 20250108
  Receipt Date: 20250108
  Transmission Date: 20250409
  Serious: Yes (Other)
  Sender: JOHNSON AND JOHNSON
  Company Number: CA-JNJFOC-20241209137

PATIENT
  Age: 8 Decade
  Sex: Female

DRUGS (3)
  1. SIMPONI [Suspect]
     Active Substance: GOLIMUMAB
     Indication: Rheumatoid arthritis
     Route: 058
     Dates: start: 20220127
  2. SIMPONI [Suspect]
     Active Substance: GOLIMUMAB
     Route: 058
     Dates: start: 20220127
  3. SHINGRIX [Concomitant]
     Active Substance: RECOMBINANT VARICELLA ZOSTER VIRUS (VZV) GLYCOPROTEIN E

REACTIONS (1)
  - Pneumonia [Recovered/Resolved]
